FAERS Safety Report 8834078 (Version 2)
Quarter: 2012Q4

REPORT INFORMATION
  Report Type: 
  Country: US (occurrence: US)
  Receive Date: 20121010
  Receipt Date: 20121023
  Transmission Date: 20130627
  Serious: No
  Sender: FDA-Public Use
  Company Number: US-VERTEX PHARMACEUTICAL INC.-2012-022070

PATIENT
  Age: 59 Year
  Sex: Male
  Weight: 94 kg

DRUGS (11)
  1. VX-950 [Suspect]
     Indication: HEPATITIS C
     Dosage: 750 mg, tid
     Route: 048
  2. PEGASYS [Concomitant]
     Indication: HEPATITIS C
     Dosage: 180 ?g, UNK
  3. PEGASYS [Concomitant]
     Dosage: 135 ?g, UNK
  4. POTASSIUM [Concomitant]
     Dosage: 25 mEq, UNK
  5. FISH OIL [Concomitant]
  6. VITAMIN D3 [Concomitant]
     Dosage: 1000 ut, UNK
  7. LOTREL [Concomitant]
     Dosage: 5-20mg
  8. HYDROCHLOROTH [Concomitant]
     Dosage: 25 mg, UNK
  9. HYDROCODONE/APAP [Concomitant]
     Dosage: 5-500mg
  10. IBUPROFEN [Concomitant]
     Dosage: 200 mg, UNK
  11. ESCITALOPRAM [Concomitant]
     Dosage: 10 mg, UNK

REACTIONS (6)
  - Influenza like illness [Unknown]
  - Dizziness [Unknown]
  - Anaemia [Unknown]
  - Diarrhoea [Unknown]
  - Dysgeusia [Unknown]
  - Nausea [Unknown]
